FAERS Safety Report 10707237 (Version 2)
Quarter: 2015Q1

REPORT INFORMATION
  Report Type: Spontaneous
  Country: JP (occurrence: JP)
  Receive Date: 20150113
  Receipt Date: 20150130
  Transmission Date: 20150721
  Serious: Yes (Death)
  Sender: FDA-Public Use
  Company Number: JP-PFIZER INC-2015013357

PATIENT
  Age: 76 Year
  Sex: Male
  Weight: 161.4 kg

DRUGS (5)
  1. LYRICA [Suspect]
     Active Substance: PREGABALIN
     Indication: SPINAL COLUMN STENOSIS
     Dosage: UNK
     Route: 048
     Dates: start: 201408
  2. LYRICA [Suspect]
     Active Substance: PREGABALIN
     Dosage: 150 MG, UNK
     Route: 048
     Dates: end: 201501
  3. LEUPLIN [Suspect]
     Active Substance: LEUPROLIDE ACETATE
     Indication: PROSTATE CANCER
     Dosage: 1 DF, 1X/DAY
     Route: 058
     Dates: start: 20090708
  4. CASODEX [Suspect]
     Active Substance: BICALUTAMIDE
     Indication: PROSTATE CANCER
     Dosage: 80 MG, 1X/DAY
     Route: 048
     Dates: start: 20090610, end: 20150107
  5. TRAMCET [Suspect]
     Active Substance: ACETAMINOPHEN\TRAMADOL
     Indication: SPINAL COLUMN STENOSIS
     Dosage: 1 DF, 2X/DAY
     Route: 048
     Dates: start: 20141227, end: 20150107

REACTIONS (4)
  - Interstitial lung disease [Fatal]
  - Condition aggravated [Fatal]
  - Acute respiratory failure [Fatal]
  - Drug ineffective [Unknown]

NARRATIVE: CASE EVENT DATE: 20150107
